FAERS Safety Report 9085401 (Version 1)
Quarter: 2013Q1

REPORT INFORMATION
  Report Type: Spontaneous
  Country: GB (occurrence: GB)
  Receive Date: 20130131
  Receipt Date: 20130131
  Transmission Date: 20140127
  Serious: Yes (Hospitalization, Other)
  Sender: FDA-Public Use
  Company Number: GB-B.I. PHARMACEUTICALS,INC./RIDGEFIELD-2013-UK-00101UK

PATIENT
  Age: 65 Year
  Sex: Male

DRUGS (5)
  1. PRADAXA [Suspect]
     Indication: ATRIAL FIBRILLATION
     Route: 048
     Dates: start: 20121024, end: 20121226
  2. BISOPROLOL [Concomitant]
  3. FUROSEMIDE [Concomitant]
  4. ROSUVASTATIN [Concomitant]
  5. SPIRONOLACTONE [Concomitant]

REACTIONS (4)
  - Renal failure acute [Recovered/Resolved]
  - Blood creatine abnormal [Recovered/Resolved]
  - Epistaxis [Recovered/Resolved]
  - Rectal haemorrhage [Recovered/Resolved]
